FAERS Safety Report 8221360-X (Version None)
Quarter: 2012Q1

REPORT INFORMATION
  Report Type: 
  Country: None (occurrence: None)
  Receive Date: 20120313
  Receipt Date: 20120305
  Transmission Date: 20120608
  Serious: Yes (Life-Threatening)
  Sender: FDA-Public Use
  Company Number: 2011SP056643

PATIENT
  Age: 56 Year
  Sex: Male

DRUGS (4)
  1. RIBAVIRIN [Suspect]
     Indication: PRODUCT USED FOR UNKNOWN INDICATION
     Dosage: 1200 MG;BID
     Dates: start: 20110825
  2. RIBAVIRIN [Suspect]
     Indication: PRODUCT USED FOR UNKNOWN INDICATION
     Dosage: 1200 MG;BID
     Dates: end: 20111117
  3. PEG-INTRON [Suspect]
     Indication: PRODUCT USED FOR UNKNOWN INDICATION
     Dosage: 120 MCG;QW;
     Dates: start: 20110825, end: 20111117
  4. VICTRELIS [Suspect]
     Indication: HEPATITIS C
     Dosage: 800 MG;TID;PO
     Dates: start: 20110910, end: 20111117

REACTIONS (4)
  - PLATELET COUNT DECREASED [None]
  - ANAEMIA [None]
  - BALANCE DISORDER [None]
  - FALL [None]
